FAERS Safety Report 5038581-X (Version None)
Quarter: 2006Q2

REPORT INFORMATION
  Report Type: 
  Country: None (occurrence: None)
  Receive Date: 20060629
  Receipt Date: 20060620
  Transmission Date: 20061013
  Serious: Yes (Death)
  Sender: FDA-Public Use
  Company Number: US-BRISTOL-MYERS SQUIBB COMPANY-13417183

PATIENT
  Age: 66 Year
  Sex: Female
  Weight: 63 kg

DRUGS (11)
  1. PRAVACHOL [Suspect]
     Indication: BLOOD CHOLESTEROL INCREASED
  2. PLAVIX [Suspect]
     Indication: ISCHAEMIC CARDIOMYOPATHY
  3. SOMA [Concomitant]
  4. OXYCONTIN [Concomitant]
  5. CELEBREX [Concomitant]
  6. LISINOPRIL [Concomitant]
  7. LOPRESSOR [Concomitant]
  8. REMERON [Concomitant]
  9. ALBUTEROL [Concomitant]
     Route: 055
  10. ADVAIR DISKUS 100/50 [Concomitant]
  11. SPIRIVA [Concomitant]

REACTIONS (1)
  - MYOCARDIAL INFARCTION [None]
